FAERS Safety Report 24205121 (Version 3)
Quarter: 2024Q4

REPORT INFORMATION
  Report Type: Report from Study
  Country: CH (occurrence: CH)
  Receive Date: 20240813
  Receipt Date: 20241001
  Transmission Date: 20250115
  Serious: Yes (Other)
  Sender: TRAVERE THERAPEUTICS
  Company Number: TRAVERE

PATIENT
  Sex: Male
  Weight: 63.5 kg

DRUGS (8)
  1. FILSPARI [Suspect]
     Active Substance: SPARSENTAN
     Indication: IgA nephropathy
     Dosage: 01-JUN-2024
     Route: 065
  2. FILSPARI [Suspect]
     Active Substance: SPARSENTAN
     Route: 065
     Dates: start: 2024, end: 20240711
  3. FILSPARI [Suspect]
     Active Substance: SPARSENTAN
     Dosage: DURING THE HOT SUMMER MONTHS
     Route: 065
     Dates: start: 20240712
  4. FILSPARI [Suspect]
     Active Substance: SPARSENTAN
     Dosage: EVERY OTHER DAY
     Route: 065
     Dates: start: 2024
  5. ATORVASTATIN [Concomitant]
     Active Substance: ATORVASTATIN
     Indication: Hyperlipidaemia
     Dosage: 1-0-0
     Dates: start: 20230707
  6. CALCIUM\CHOLECALCIFEROL [Concomitant]
     Active Substance: CALCIUM\CHOLECALCIFEROL
     Indication: Prophylaxis
     Dosage: 500/800 MG
     Dates: start: 20231006
  7. DAPAGLIFLOZIN [Concomitant]
     Active Substance: DAPAGLIFLOZIN
     Indication: Renal disorder
     Dosage: 1-0-0
     Dates: start: 20210312
  8. SODIUM BICARBONATE [Concomitant]
     Active Substance: SODIUM BICARBONATE
     Indication: Renal tubular acidosis
     Dosage: 1-1-1
     Dates: start: 20231007

REACTIONS (3)
  - Hypotension [Recovered/Resolved]
  - Malaise [Recovered/Resolved]
  - Off label use [Unknown]

NARRATIVE: CASE EVENT DATE: 20240101
